FAERS Safety Report 11030284 (Version 2)
Quarter: 2015Q2

REPORT INFORMATION
  Report Type: Report from Study
  Country: US (occurrence: US)
  Receive Date: 20150415
  Receipt Date: 20150417
  Transmission Date: 20150821
  Serious: Yes (Death, Hospitalization, Other)
  Sender: FDA-Public Use
  Company Number: US-ASTELLAS-2015US001134

PATIENT
  Age: 71 Year
  Sex: Female

DRUGS (3)
  1. ERLOTINIB [Suspect]
     Active Substance: ERLOTINIB
     Indication: BONE CANCER
     Dosage: 150 UNIT NOT REPORTED, ONCE DAILY
     Route: 065
  2. IRON [Concomitant]
     Active Substance: IRON
     Indication: PRODUCT USED FOR UNKNOWN INDICATION
     Dosage: UNK, UNKNOWN FREQ.
     Route: 065
  3. ERLOTINIB [Suspect]
     Active Substance: ERLOTINIB
     Indication: LUNG NEOPLASM MALIGNANT

REACTIONS (8)
  - Swollen tongue [Not Recovered/Not Resolved]
  - Candida infection [Recovered/Resolved]
  - Growth of eyelashes [Recovered/Resolved]
  - Small cell carcinoma [Unknown]
  - Clostridium difficile infection [Recovered/Resolved]
  - Hair texture abnormal [Unknown]
  - Drug dose omission [Unknown]
  - Death [Fatal]

NARRATIVE: CASE EVENT DATE: 20150402
